FAERS Safety Report 20341253 (Version 1)
Quarter: 2022Q1

REPORT INFORMATION
  Report Type: Report from Study
  Country: JP (occurrence: JP)
  Receive Date: 20220117
  Receipt Date: 20220117
  Transmission Date: 20220423
  Serious: Yes (Other)
  Sender: FDA-Public Use
  Company Number: JP-ABBVIE-22K-087-4234738-00

PATIENT
  Age: 5 Month
  Sex: Male
  Weight: 6.52 kg

DRUGS (18)
  1. VALPROATE SODIUM [Suspect]
     Active Substance: VALPROATE SODIUM
     Indication: Infantile spasms
     Route: 048
     Dates: start: 20200323
  2. SABRIL [Suspect]
     Active Substance: VIGABATRIN
     Indication: Infantile spasms
     Route: 048
     Dates: start: 20200414, end: 20200417
  3. SABRIL [Suspect]
     Active Substance: VIGABATRIN
     Route: 048
     Dates: start: 20200417, end: 20200420
  4. SABRIL [Suspect]
     Active Substance: VIGABATRIN
     Route: 048
     Dates: start: 20200420, end: 20200423
  5. SABRIL [Suspect]
     Active Substance: VIGABATRIN
     Route: 048
     Dates: start: 20200423, end: 20200426
  6. SABRIL [Suspect]
     Active Substance: VIGABATRIN
     Route: 048
     Dates: start: 20200426, end: 20200429
  7. SABRIL [Suspect]
     Active Substance: VIGABATRIN
     Route: 048
     Dates: start: 20200429, end: 20200508
  8. SABRIL [Suspect]
     Active Substance: VIGABATRIN
     Route: 048
     Dates: start: 20200508, end: 20200515
  9. CLONAZEPAM [Suspect]
     Active Substance: CLONAZEPAM
     Indication: Infantile spasms
     Route: 048
     Dates: start: 20200508, end: 20200511
  10. CLOBAZAM [Suspect]
     Active Substance: CLOBAZAM
     Indication: Infantile spasms
     Route: 048
  11. CLOBAZAM [Suspect]
     Active Substance: CLOBAZAM
     Route: 048
     Dates: start: 20200511, end: 20200522
  12. ZONISAMIDE [Concomitant]
     Active Substance: ZONISAMIDE
     Indication: Infantile spasms
     Dates: start: 20200406
  13. CHLORAL HYDRATE [Concomitant]
     Active Substance: CHLORAL HYDRATE
     Indication: Infantile spasms
     Dates: start: 20200430
  14. TRICLOFOS SODIUM [Concomitant]
     Active Substance: TRICLOFOS SODIUM
     Indication: Infantile spasms
     Dates: start: 20200511
  15. ARTANE [Concomitant]
     Active Substance: TRIHEXYPHENIDYL HYDROCHLORIDE
     Indication: Infantile spasms
     Dates: start: 20200612
  16. TOPIRAMATE [Concomitant]
     Active Substance: TOPIRAMATE
     Indication: Infantile spasms
     Dates: start: 20200522, end: 20200608
  17. VITAMIN B6 [Concomitant]
     Active Substance: PYRIDOXINE HYDROCHLORIDE
     Indication: Infantile spasms
     Dates: start: 20200316, end: 20200323
  18. SUCROSE [Concomitant]
     Active Substance: SUCROSE
     Indication: Product used for unknown indication
     Dates: start: 20200423

REACTIONS (5)
  - Laryngomalacia [Not Recovered/Not Resolved]
  - Wheezing [Not Recovered/Not Resolved]
  - Gastrooesophageal reflux disease [Not Recovered/Not Resolved]
  - Carnitine deficiency [Recovered/Resolved]
  - Drug ineffective [Unknown]

NARRATIVE: CASE EVENT DATE: 20200101
